FAERS Safety Report 13668247 (Version 1)
Quarter: 2017Q2

REPORT INFORMATION
  Report Type: Spontaneous
  Country: US (occurrence: US)
  Receive Date: 20170620
  Receipt Date: 20170620
  Transmission Date: 20170830
  Serious: No
  Sender: FDA-Public Use
  Company Number: US-ROCHE-1021109

PATIENT
  Sex: Female

DRUGS (1)
  1. KLONOPIN [Suspect]
     Active Substance: CLONAZEPAM
     Indication: PRODUCT USED FOR UNKNOWN INDICATION
     Route: 065

REACTIONS (15)
  - Agitation [Unknown]
  - Insomnia [Unknown]
  - Tension [Unknown]
  - Pruritus [Unknown]
  - Crying [Unknown]
  - Adverse drug reaction [Unknown]
  - Tremor [Unknown]
  - Feeling abnormal [Unknown]
  - Hypoaesthesia [Unknown]
  - Paraesthesia [Unknown]
  - Mental impairment [Unknown]
  - Panic reaction [Unknown]
  - Decreased appetite [Unknown]
  - Anxiety [Unknown]
  - Tobacco user [Unknown]
